FAERS Safety Report 12068547 (Version 1)
Quarter: 2016Q1

REPORT INFORMATION
  Report Type: Spontaneous
  Country: JP (occurrence: JP)
  Receive Date: 20160211
  Receipt Date: 20160211
  Transmission Date: 20160526
  Serious: Yes (Life-Threatening, Hospitalization, Other)
  Sender: FDA-Public Use
  Company Number: JP-BRISTOL-MYERS SQUIBB COMPANY-11523529

PATIENT
  Age: 0 Year
  Sex: Female
  Weight: 3.26 kg

DRUGS (1)
  1. MAXIPIME [Suspect]
     Active Substance: CEFEPIME HYDROCHLORIDE
     Indication: PRODUCT USED FOR UNKNOWN INDICATION
     Dosage: EXPOSURE DURING WEEK 39 OF GESTATION
     Route: 064
     Dates: start: 20011022, end: 20011022

REACTIONS (9)
  - Foetal distress syndrome [Not Recovered/Not Resolved]
  - Acidosis [Recovering/Resolving]
  - Foetal exposure during pregnancy [Unknown]
  - Bradycardia foetal [Not Recovered/Not Resolved]
  - Neonatal asphyxia [Recovering/Resolving]
  - Hyperbilirubinaemia [Recovering/Resolving]
  - Convulsion neonatal [Recovering/Resolving]
  - Pneumomediastinum [Recovering/Resolving]
  - Developmental delay [Not Recovered/Not Resolved]

NARRATIVE: CASE EVENT DATE: 200110
